FAERS Safety Report 6158900-0 (Version None)
Quarter: 2009Q2

REPORT INFORMATION
  Report Type: 
  Country: None (occurrence: None)
  Receive Date: 20090415
  Receipt Date: 20090401
  Transmission Date: 20091009
  Serious: Yes (Hospitalization, Other)
  Sender: FDA-Public Use
  Company Number: 09-000529

PATIENT
  Sex: Female

DRUGS (2)
  1. DORYX [Suspect]
     Indication: CAT SCRATCH DISEASE
     Dosage: 150MG, 2 TABLETS DAILY, ORAL
     Route: 048
     Dates: start: 20090316, end: 20090301
  2. DORYX [Suspect]
     Indication: LYME DISEASE
     Dosage: 150MG, 2 TABLETS DAILY, ORAL
     Route: 048
     Dates: start: 20090316, end: 20090301

REACTIONS (8)
  - ANOREXIA [None]
  - DEHYDRATION [None]
  - DRUG HYPERSENSITIVITY [None]
  - FEELING ABNORMAL [None]
  - HALLUCINATION, AUDITORY [None]
  - MYOCARDIAL INFARCTION [None]
  - PARAESTHESIA ORAL [None]
  - THROAT TIGHTNESS [None]
